FAERS Safety Report 20081018 (Version 2)
Quarter: 2022Q1

REPORT INFORMATION
  Report Type: Report from Study
  Country: CA (occurrence: CA)
  Receive Date: 20211117
  Receipt Date: 20220120
  Transmission Date: 20220424
  Serious: Yes (Hospitalization)
  Sender: FDA-Public Use
  Company Number: CA-MTPC-MTDA2021-0027590

PATIENT
  Age: 62 Year
  Sex: Male

DRUGS (15)
  1. EDARAVONE [Suspect]
     Active Substance: EDARAVONE
     Indication: Amyotrophic lateral sclerosis
     Dosage: 105 MILLIGRAM, DIE BY CYCLE, 10 DAYS ON 28 DAYS
     Route: 048
     Dates: start: 20200914
  2. VENTOLIN [Concomitant]
     Active Substance: ALBUTEROL SULFATE
     Indication: Asthma
     Dosage: 100 MICROGRAM, PRN
     Route: 050
     Dates: start: 2016
  3. RILUZOLE [Concomitant]
     Active Substance: RILUZOLE
     Indication: Amyotrophic lateral sclerosis
     Dosage: 50 MILLIGRAM, BID
     Route: 048
     Dates: start: 20200731
  4. ADVAIR HFA [Concomitant]
     Active Substance: FLUTICASONE PROPIONATE\SALMETEROL XINAFOATE
     Indication: Asthma
     Dosage: 125 MICROGRAM, PRN
     Route: 050
     Dates: start: 2016
  5. ZOPICLONE [Concomitant]
     Active Substance: ZOPICLONE
     Indication: Insomnia
     Dosage: 5 MILLIGRAM, PRN
     Route: 048
     Dates: start: 20201028, end: 20210830
  6. ZOPICLONE [Concomitant]
     Active Substance: ZOPICLONE
     Dosage: 7.5  MILLIGRAM, PRN
     Route: 048
     Dates: start: 20210901
  7. CORTISONE [Concomitant]
     Active Substance: CORTISONE
     Indication: Periarthritis
     Dosage: 1 TIME
     Route: 014
     Dates: start: 20201029, end: 20201029
  8. CORTISONE [Concomitant]
     Active Substance: CORTISONE
     Dosage: 1 TIME
     Route: 014
     Dates: start: 20201105, end: 20201105
  9. TOZINAMERAN [Concomitant]
     Active Substance: TOZINAMERAN
     Indication: Prophylaxis
     Dosage: 0.3 MILLILITER, 1 TIME
     Route: 030
     Dates: start: 20210422, end: 20210422
  10. TOZINAMERAN [Concomitant]
     Active Substance: TOZINAMERAN
     Dosage: 0.3 MILLILITER, 1 TIME
     Route: 030
     Dates: start: 20200712, end: 20200712
  11. COLACE [Concomitant]
     Active Substance: DOCUSATE SODIUM
     Indication: Constipation
     Dosage: 200 MILLIGRAM, QD
     Route: 048
     Dates: start: 20210901
  12. POLYETHYLENE GLYCOL 3350 [Concomitant]
     Active Substance: POLYETHYLENE GLYCOL 3350
     Indication: Constipation
     Dosage: 17 GRAM, PRN
     Route: 048
     Dates: start: 20210901
  13. ELIQUIS [Concomitant]
     Active Substance: APIXABAN
     Indication: Prophylaxis
     Dosage: 10 MILLIGRAM, BID
     Route: 048
     Dates: start: 20211101, end: 20211107
  14. ELIQUIS [Concomitant]
     Active Substance: APIXABAN
     Dosage: 5 MILLIGRAM, BID
     Route: 048
     Dates: start: 20211108
  15. LOVENOX [Concomitant]
     Active Substance: ENOXAPARIN SODIUM
     Indication: Phlebitis
     Dosage: 70 MICROGRAM
     Route: 058
     Dates: start: 20211101, end: 20211101

REACTIONS (1)
  - Phlebitis [Recovered/Resolved]

NARRATIVE: CASE EVENT DATE: 20211031
